FAERS Safety Report 12120435 (Version 6)
Quarter: 2016Q4

REPORT INFORMATION
  Report Type: Report from Study
  Country: CA (occurrence: CA)
  Receive Date: 20160226
  Receipt Date: 20161014
  Transmission Date: 20170206
  Serious: Yes (Life-Threatening)
  Sender: FDA-Public Use
  Company Number: CA-SA-2015SA181114

PATIENT
  Age: 30 Year
  Sex: Female
  Weight: 56 kg

DRUGS (6)
  1. GRAVOL [Concomitant]
     Active Substance: DIMENHYDRINATE
     Route: 048
     Dates: start: 20151109
  2. METHYLPREDNISOLONE. [Concomitant]
     Active Substance: METHYLPREDNISOLONE
     Dosage: 1 H
     Route: 042
     Dates: start: 20151109
  3. LEMTRADA [Suspect]
     Active Substance: ALEMTUZUMAB
     Indication: MULTIPLE SCLEROSIS
     Route: 041
     Dates: start: 20151109, end: 20151117
  4. RANITIDINE. [Concomitant]
     Active Substance: RANITIDINE
     Route: 048
     Dates: start: 20151109
  5. BENADRYL [Concomitant]
     Active Substance: DIPHENHYDRAMINE HYDROCHLORIDE
     Route: 048
     Dates: start: 20151109
  6. ACYCLOVIR. [Concomitant]
     Active Substance: ACYCLOVIR
     Route: 048
     Dates: start: 20151109

REACTIONS (40)
  - Mood altered [Not Recovered/Not Resolved]
  - Urine analysis abnormal [Not Recovered/Not Resolved]
  - Urinary casts [Unknown]
  - Laboratory test abnormal [Not Recovered/Not Resolved]
  - Arthralgia [Recovered/Resolved]
  - Erythema [Unknown]
  - Pruritus [Unknown]
  - Impulsive behaviour [Not Recovered/Not Resolved]
  - Neutrophil percentage increased [Recovered/Resolved]
  - Bacterial test [Not Recovered/Not Resolved]
  - Schizophreniform disorder [Not Recovered/Not Resolved]
  - Red cell distribution width increased [Unknown]
  - Leukocyturia [Recovered/Resolved]
  - Fatigue [Not Recovered/Not Resolved]
  - Crystal urine present [Unknown]
  - Red blood cell count decreased [Not Recovered/Not Resolved]
  - Alcohol abuse [Not Recovered/Not Resolved]
  - Anxiety [Not Recovered/Not Resolved]
  - Lipaemic index score [Unknown]
  - Mean cell haemoglobin concentration decreased [Not Recovered/Not Resolved]
  - Mean cell volume increased [Not Recovered/Not Resolved]
  - Hot flush [Unknown]
  - Myalgia [Recovered/Resolved]
  - Contusion [Unknown]
  - Pain [Recovered/Resolved]
  - Mental disorder [Not Recovered/Not Resolved]
  - Ill-defined disorder [Unknown]
  - Urine abnormality [Not Recovered/Not Resolved]
  - Red blood cells urine positive [Unknown]
  - Petechiae [Unknown]
  - Blister [Recovered/Resolved]
  - Urinary sediment present [Not Recovered/Not Resolved]
  - Urticaria [Unknown]
  - Heart rate increased [Unknown]
  - Lymphocyte count decreased [Not Recovered/Not Resolved]
  - Monocyte percentage decreased [Recovered/Resolved]
  - Nitrite urine present [Recovered/Resolved]
  - Haemoglobin decreased [Recovered/Resolved]
  - Lymphocyte percentage decreased [Not Recovered/Not Resolved]
  - Headache [Not Recovered/Not Resolved]

NARRATIVE: CASE EVENT DATE: 2015
